FAERS Safety Report 21964472 (Version 1)
Quarter: 2023Q1

REPORT INFORMATION
  Report Type: Spontaneous
  Country: None (occurrence: US)
  Receive Date: 20230207
  Receipt Date: 20230207
  Transmission Date: 20230417
  Serious: No
  Sender: FDA-Public Use
  Company Number: US-Amphastar Pharmaceuticals, Inc.-2137642

PATIENT
  Age: 77 Year
  Sex: Male
  Weight: 77.273 kg

DRUGS (12)
  1. ENOXAPARIN SODIUM [Suspect]
     Active Substance: ENOXAPARIN SODIUM
     Indication: Anticoagulant therapy
     Route: 058
  2. ALFUZOSIN [Concomitant]
     Active Substance: ALFUZOSIN
  3. METOPROLOL [Concomitant]
     Active Substance: METOPROLOL
  4. SIMVASTATIN [Concomitant]
     Active Substance: SIMVASTATIN
  5. TADALAFIL [Concomitant]
     Active Substance: TADALAFIL
  6. FLONASE [Concomitant]
     Active Substance: FLUTICASONE PROPIONATE
  7. DUTASTERIDE [Concomitant]
     Active Substance: DUTASTERIDE
  8. LASIX [Concomitant]
     Active Substance: FUROSEMIDE
  9. MINERALS\VITAMINS [Concomitant]
     Active Substance: MINERALS\VITAMINS
  10. Calcium 600mg Plus D3 [Concomitant]
  11. COENZYME Q10 [Concomitant]
     Active Substance: DIETARY SUPPLEMENT\UBIDECARENONE
  12. SERRAPEPTASE [Concomitant]
     Active Substance: SERRAPEPTASE

REACTIONS (4)
  - Headache [Unknown]
  - Non-cardiac chest pain [Unknown]
  - Paraesthesia [Unknown]
  - Hypoaesthesia [Unknown]

NARRATIVE: CASE EVENT DATE: 20221111
